FAERS Safety Report 4751120-3 (Version None)
Quarter: 2005Q3

REPORT INFORMATION
  Report Type: 
  Country: None (occurrence: None)
  Receive Date: 20050822
  Receipt Date: 20050808
  Transmission Date: 20060218
  Serious: Yes (Other)
  Sender: FDA-Public Use
  Company Number: B0375006A

PATIENT
  Age: 31 Year
  Sex: Female

DRUGS (5)
  1. TRIFLUOPERAZINE HYDROCHLORIDE (FORMULATION UNKNOWN) (TRIFLUOPERAZINE H [Suspect]
  2. MIRTAZAPINE [Suspect]
  3. ALPRAZOLAM [Suspect]
  4. DIAZEPAM [Suspect]
  5. SULPIRIDE (SULPIRIDE) [Suspect]

REACTIONS (2)
  - ABORTION SPONTANEOUS [None]
  - DRUG EXPOSURE DURING PREGNANCY [None]
